FAERS Safety Report 7074174-0 (Version None)
Quarter: 2010Q4

REPORT INFORMATION
  Report Type: 
  Country: None (occurrence: None)
  Receive Date: 20101029
  Receipt Date: 20101022
  Transmission Date: 20110411
  Serious: Yes (Other)
  Sender: FDA-Public Use
  Company Number: FR-GENZYME-CLOF-1001179

PATIENT
  Sex: Female
  Weight: 44 kg

DRUGS (13)
  1. EVOLTRA [Suspect]
     Indication: ACUTE LYMPHOCYTIC LEUKAEMIA
     Dosage: 35.5 MG, QDX5
     Route: 042
     Dates: start: 20100821, end: 20100825
  2. MITOXANTRONE [Suspect]
     Indication: LEUKAEMIA
     Dosage: 11 MG, UNK
     Route: 042
     Dates: start: 20100823, end: 20100826
  3. ETOPOSIDE [Suspect]
     Indication: LEUKAEMIA
     Dosage: 210 MG, UNK
     Route: 042
     Dates: start: 20100823, end: 20100825
  4. ELSPAR [Suspect]
     Indication: LEUKAEMIA
     Dosage: 13600 IU, UNK
     Route: 042
     Dates: start: 20100827, end: 20100901
  5. ERWINASE [Suspect]
     Indication: LEUKAEMIA
     Dosage: 27500 IU, UNK
     Route: 042
     Dates: start: 20100902, end: 20100902
  6. DEXAMETHASONE [Concomitant]
     Indication: LEUKAEMIA
     Dosage: 12 MG, UNK
     Route: 042
     Dates: start: 20100821, end: 20100825
  7. METHOTREXATE [Suspect]
     Indication: LEUKAEMIA
     Dosage: 12 MG, UNK
     Route: 037
     Dates: start: 20100827, end: 20100827
  8. ARACYTINE [Suspect]
     Indication: LEUKAEMIA
     Dosage: 30 MG, UNK
     Route: 037
     Dates: start: 20100827, end: 20100827
  9. HYDROCORTISONE [Suspect]
     Indication: LEUKAEMIA
     Dosage: 15 MG, UNK
     Route: 037
     Dates: start: 20100827, end: 20100827
  10. MORPHINE [Concomitant]
     Indication: PRODUCT USED FOR UNKNOWN INDICATION
     Route: 065
  11. HALDOL [Concomitant]
     Indication: PRODUCT USED FOR UNKNOWN INDICATION
     Route: 065
  12. VFEND [Concomitant]
     Indication: PROPHYLAXIS
     Dosage: 400 MG, UNK
     Route: 048
     Dates: start: 20100816, end: 20100901
  13. CANCIDAS [Concomitant]
     Indication: PROPHYLAXIS
     Dosage: 70 MG, UNK
     Route: 042
     Dates: start: 20100816, end: 20100901

REACTIONS (7)
  - ESCHERICHIA TEST POSITIVE [None]
  - HALLUCINATION, AUDITORY [None]
  - HALLUCINATION, VISUAL [None]
  - HYPOTENSION [None]
  - NEUTROPENIA [None]
  - PYREXIA [None]
  - TACHYCARDIA [None]
